FAERS Safety Report 9137617 (Version 3)
Quarter: 2013Q2

REPORT INFORMATION
  Report Type: Spontaneous
  Country: US (occurrence: US)
  Receive Date: 20130304
  Receipt Date: 20130410
  Transmission Date: 20140414
  Serious: Yes (Other)
  Sender: FDA-Public Use
  Company Number: PHEH2013US005116

PATIENT
  Sex: Female

DRUGS (1)
  1. TOBI [Suspect]
     Dosage: UNK UKN, UNK

REACTIONS (3)
  - Infection [Unknown]
  - Lung disorder [Unknown]
  - Disease progression [Unknown]
